FAERS Safety Report 6830647-4 (Version None)
Quarter: 2010Q3

REPORT INFORMATION
  Report Type: 
  Country: None (occurrence: None)
  Receive Date: 20100709
  Receipt Date: 20100709
  Transmission Date: 20110219
  Serious: Yes (Life-Threatening, Hospitalization, Disabling)
  Sender: FDA-Public Use
  Company Number: None

PATIENT
  Sex: Male
  Weight: 83.9154 kg

DRUGS (1)
  1. JANUVIA [Suspect]
     Dosage: 100 MG ONE A DAY

REACTIONS (4)
  - FALL [None]
  - LIP SWELLING [None]
  - OEDEMA MOUTH [None]
  - VOMITING [None]
